FAERS Safety Report 9890673 (Version 1)
Quarter: 2014Q1

REPORT INFORMATION
  Report Type: Spontaneous
  Country: GB (occurrence: None)
  Receive Date: 20140210
  Receipt Date: 20140210
  Transmission Date: 20141002
  Serious: Yes (Hospitalization)
  Sender: FDA-Public Use
  Company Number: AUR-APL-2014-01338

PATIENT
  Age: 77 Year
  Sex: Female

DRUGS (10)
  1. BISOPROLOL (BISOPROLOL) [Suspect]
     Indication: HYPERTENSION
     Dosage: 5 MG (5 MG, 1 IN 1 D), ORAL
     Route: 048
     Dates: end: 20140119
  2. ALENDRONIC ACID (ALENDRONIC ACID) [Concomitant]
  3. AMLODIPINE (AMLODIPINE) [Concomitant]
  4. ASPIRIN (ACETYLSALICYLIC ACID) [Concomitant]
  5. ATORVASTATIN (ATORVASTATIN) [Concomitant]
  6. CARBAMAZEPINE (CARBAMAZEPINE) [Concomitant]
  7. INDAPAMIDE (INDAPAMIDE) [Concomitant]
  8. LEVOTHYROXINE (LEVOTHYROXINE) [Concomitant]
  9. LISINOPRIL (LISINOPRIL) [Concomitant]
  10. PREDNISOLONE (PREDNISOLONE) [Concomitant]

REACTIONS (4)
  - Atrioventricular block first degree [None]
  - Syncope [None]
  - Face injury [None]
  - Sinus bradycardia [None]
